FAERS Safety Report 17842448 (Version 2)
Quarter: 2020Q3

REPORT INFORMATION
  Report Type: Report from Study
  Country: JP (occurrence: JP)
  Receive Date: 20200529
  Receipt Date: 20200605
  Transmission Date: 20201105
  Serious: Yes (Hospitalization)
  Sender: FDA-Public Use
  Company Number: JP-DAIICHI SANKYO (CHINA) HOLDINGS CO., LTD.-DSJ-2020-114780

PATIENT

DRUGS (5)
  1. TRASTUZUMAB DERUXTECAN. [Suspect]
     Active Substance: TRASTUZUMAB DERUXTECAN
     Indication: BILE DUCT CANCER
     Dosage: 5.4 MG/KG, ONCE EVERY 3 WK
     Route: 065
     Dates: start: 20200422, end: 20200513
  2. LANSOPRAZOLE. [Concomitant]
     Active Substance: LANSOPRAZOLE
     Indication: CHRONIC GASTRITIS
     Dosage: 30 MG, QD
     Route: 048
  3. GOOFICE [Concomitant]
     Active Substance: ELOBIXIBAT
     Indication: CONSTIPATION
     Dosage: 10 MG, QD
     Route: 048
  4. MAGNESIUM OXIDE. [Concomitant]
     Active Substance: MAGNESIUM OXIDE
     Indication: CONSTIPATION
     Dosage: 330 MG, BID
     Route: 048
  5. CIPROXAN                           /00697202/ [Concomitant]
     Active Substance: CIPROFLOXACIN
     Indication: PYREXIA
     Dosage: 200 MG, TID
     Route: 048
     Dates: start: 20200519

REACTIONS (1)
  - Pneumonitis [Not Recovered/Not Resolved]

NARRATIVE: CASE EVENT DATE: 20200526
